FAERS Safety Report 4885083-7 (Version None)
Quarter: 2006Q1

REPORT INFORMATION
  Report Type: 
  Country: None (occurrence: None)
  Receive Date: 20060117
  Receipt Date: 20060109
  Transmission Date: 20060701
  Serious: Yes (Other)
  Sender: FDA-Public Use
  Company Number: 2006005286

PATIENT
  Age: 71 Year
  Sex: Male
  Weight: 93.8946 kg

DRUGS (6)
  1. LIPITOR [Suspect]
     Indication: BLOOD CHOLESTEROL INCREASED
     Dosage: 80 MG (80 MG, 1 IN 1 D)
  2. SYNTHROID [Suspect]
     Indication: THYROID DISORDER
  3. ZOLOFT [Concomitant]
  4. CHONDROITIN/GLUCOSAMINE (CHONDROITIN, GLUCOSAMINE) [Concomitant]
  5. PROBENECID [Concomitant]
  6. ASPIRIN [Concomitant]

REACTIONS (3)
  - BASEDOW'S DISEASE [None]
  - MUSCULOSKELETAL STIFFNESS [None]
  - MYALGIA [None]
